FAERS Safety Report 8046189-7 (Version None)
Quarter: 2012Q1

REPORT INFORMATION
  Report Type: 
  Country: None (occurrence: None)
  Receive Date: 20120113
  Receipt Date: 20120106
  Transmission Date: 20120608
  Serious: Yes (Other)
  Sender: FDA-Public Use
  Company Number: IT-GILEAD-2011-0045633

PATIENT
  Sex: Male

DRUGS (12)
  1. RANOLAZINE [Suspect]
     Indication: ANGINA PECTORIS
     Dosage: 375 MG, BID
     Route: 048
     Dates: start: 20111005, end: 20111026
  2. DIAZEPAM [Concomitant]
     Dosage: 25 MG, QD
     Route: 048
  3. LANSOPRAZOLE [Concomitant]
     Dosage: 30 MG, QD
     Route: 048
  4. BISOPROLOL FUMARATE [Concomitant]
     Dosage: 5 MG, QD
     Route: 048
  5. TEMAZEPAM [Concomitant]
     Dosage: 20 MG, QD
     Route: 048
  6. ISOSORBIDE MONONITRATE [Concomitant]
     Dosage: 60 MG, QD
     Route: 048
  7. CITALOPRAM [Concomitant]
     Dosage: 10 MG, QD
     Route: 048
  8. TRAMADOL HCL [Concomitant]
     Dosage: 50 MG, QD
     Route: 048
  9. ADALAT [Concomitant]
     Dosage: 60 MG, QD
     Route: 048
  10. ROSUVASTATIN [Concomitant]
     Dosage: 10 MG, QD
     Route: 048
  11. CO AMILOFRUSE [Concomitant]
     Route: 048
  12. ASPIRIN [Concomitant]
     Dosage: 75 MG, QD
     Route: 048

REACTIONS (1)
  - ANGER [None]
